FAERS Safety Report 10640349 (Version 1)
Quarter: 2014Q4

REPORT INFORMATION
  Report Type: Spontaneous
  Country: US (occurrence: None)
  Receive Date: 20141208
  Receipt Date: 20141208
  Transmission Date: 20150529
  Serious: Yes (Disabling)
  Sender: FDA-Public Use
  Company Number: None

PATIENT
  Age: 54 Year
  Sex: Female
  Weight: 107.5 kg

DRUGS (1)
  1. DULOXETINE HYDROCHLORIDE. [Suspect]
     Active Substance: DULOXETINE HYDROCHLORIDE
     Dosage: 1  PILL  ONCE DAILY  TAKEN BY MOUTH
     Route: 048

REACTIONS (13)
  - Malaise [None]
  - Dizziness [None]
  - Cerebrovascular accident [None]
  - Mania [None]
  - Nausea [None]
  - Paraesthesia [None]
  - Depression [None]
  - Pain [None]
  - Weight increased [None]
  - Headache [None]
  - Insomnia [None]
  - Irritability [None]
  - Abnormal dreams [None]

NARRATIVE: CASE EVENT DATE: 20140802
